FAERS Safety Report 16377096 (Version 1)
Quarter: 2019Q2

REPORT INFORMATION
  Report Type: Spontaneous
  Country: NG (occurrence: NG)
  Receive Date: 20190531
  Receipt Date: 20190531
  Transmission Date: 20190711
  Serious: Yes (Other)
  Sender: FDA-Public Use
  Company Number: NG-SCIEGEN PHARMACEUTICALS INC-2019SCILIT00186

PATIENT
  Age: 10 Year
  Sex: Female
  Weight: 26 kg

DRUGS (4)
  1. ZIDOVUDINE. [Suspect]
     Active Substance: ZIDOVUDINE
  2. NEVIRAPINE TABLETS [Suspect]
     Active Substance: NEVIRAPINE
  3. LAMIVUDINE. [Suspect]
     Active Substance: LAMIVUDINE
  4. LEVO-THYROXINE [Interacting]
     Active Substance: LEVOTHYROXINE

REACTIONS (2)
  - Autoimmune thyroiditis [Unknown]
  - Hypothyroidism [Unknown]
